FAERS Safety Report 7440114-5 (Version None)
Quarter: 2011Q2

REPORT INFORMATION
  Report Type: 
  Country: None (occurrence: None)
  Receive Date: 20110427
  Receipt Date: 20110414
  Transmission Date: 20111010
  Serious: Yes (Hospitalization, Other)
  Sender: FDA-Public Use
  Company Number: DE-ROCHE-769402

PATIENT
  Sex: Male
  Weight: 85 kg

DRUGS (4)
  1. METHOTREXATE [Concomitant]
     Route: 048
  2. KERLONE [Concomitant]
     Route: 048
  3. TOCILIZUMAB [Suspect]
     Indication: RHEUMATOID ARTHRITIS
     Dosage: MONTHLY DOSAGE OF 560 MG GIVEN ON 29 NOV 2010, 29 DEC 2010 31 JAN 2011 AND 28 FEB 2011.
     Route: 042
     Dates: start: 20101129, end: 20110228
  4. DECORTIN [Concomitant]
     Route: 048

REACTIONS (6)
  - ARTHROPATHY [None]
  - INFLUENZA LIKE ILLNESS [None]
  - HYPERSENSITIVITY [None]
  - PYREXIA [None]
  - PRURITUS [None]
  - RASH [None]
